FAERS Safety Report 25298853 (Version 1)
Quarter: 2025Q2

REPORT INFORMATION
  Report Type: Spontaneous
  Country: SE (occurrence: SE)
  Receive Date: 20250512
  Receipt Date: 20250512
  Transmission Date: 20250716
  Serious: Yes (Other)
  Sender: ORGANON
  Company Number: None

PATIENT
  Age: 56 Year
  Sex: Female

DRUGS (2)
  1. LOSARTAN POTASSIUM [Suspect]
     Active Substance: LOSARTAN POTASSIUM
  2. ALLOPURINOL [Suspect]
     Active Substance: ALLOPURINOL

REACTIONS (2)
  - Skin reaction [Unknown]
  - Drug eruption [Not Recovered/Not Resolved]
